FAERS Safety Report 11083546 (Version 1)
Quarter: 2015Q2

REPORT INFORMATION
  Report Type: Spontaneous
  Country: GB (occurrence: GB)
  Receive Date: 20150501
  Receipt Date: 20150501
  Transmission Date: 20150821
  Serious: Yes (Hospitalization)
  Sender: FDA-Public Use
  Company Number: GB-SA-2015SA056644

PATIENT
  Age: 54 Year
  Sex: Female

DRUGS (3)
  1. FLUOROURACIL. [Suspect]
     Active Substance: FLUOROURACIL
     Indication: ADJUVANT THERAPY
     Route: 065
  2. OXALIPLATIN. [Suspect]
     Active Substance: OXALIPLATIN
     Indication: ADJUVANT THERAPY
     Route: 065
  3. LEUCOVORIN CALCIUM. [Suspect]
     Active Substance: LEUCOVORIN CALCIUM
     Indication: ADJUVANT THERAPY
     Route: 065

REACTIONS (18)
  - Dyspnoea [Recovering/Resolving]
  - Tachycardia [Recovering/Resolving]
  - Mediastinal shift [Recovering/Resolving]
  - Pulmonary fibrosis [Recovering/Resolving]
  - Hypoventilation [Recovering/Resolving]
  - PCO2 decreased [Recovering/Resolving]
  - Lung consolidation [Recovering/Resolving]
  - Interstitial lung disease [Recovering/Resolving]
  - Pyrexia [Recovering/Resolving]
  - Crepitations [Recovering/Resolving]
  - Pneumothorax [Recovering/Resolving]
  - Hypoxia [Recovering/Resolving]
  - Percussion test abnormal [Recovering/Resolving]
  - White blood cell count increased [Recovering/Resolving]
  - Computerised tomogram abnormal [Recovering/Resolving]
  - Breath sounds abnormal [Recovering/Resolving]
  - C-reactive protein increased [Recovering/Resolving]
  - PO2 decreased [Recovering/Resolving]
